FAERS Safety Report 6114806-4 (Version None)
Quarter: 2009Q1

REPORT INFORMATION
  Report Type: 
  Country: None (occurrence: None)
  Receive Date: 20090313
  Receipt Date: 20090311
  Transmission Date: 20090719
  Serious: Yes (Hospitalization)
  Sender: FDA-Public Use
  Company Number: AT-ABBOTT-09P-009-0561936-00

PATIENT
  Sex: Female

DRUGS (1)
  1. DEPAKENE [Suspect]
     Indication: EPILEPSY
     Route: 048

REACTIONS (3)
  - EPILEPSY [None]
  - IRON DEFICIENCY [None]
  - THERAPEUTIC RESPONSE DECREASED [None]
